FAERS Safety Report 5144808-6 (Version None)
Quarter: 2006Q4

REPORT INFORMATION
  Report Type: 
  Country: None (occurrence: None)
  Receive Date: 20061103
  Receipt Date: 20061103
  Transmission Date: 20070319
  Serious: Yes (Hospitalization)
  Sender: FDA-Public Use
  Company Number: None

PATIENT
  Sex: Male
  Weight: 83.4619 kg

DRUGS (14)
  1. CAPECITABINE [Suspect]
     Indication: COLON CANCER METASTATIC
     Dosage: 1750 MG, BID, PO
     Route: 048
     Dates: start: 20060913, end: 20061026
  2. CETUXIMAB [Suspect]
     Indication: COLON CANCER METASTATIC
     Dosage: 492 MG, QW, IV
     Route: 042
     Dates: start: 20060913, end: 20061018
  3. OXALIPLATIN [Suspect]
     Indication: COLON CANCER METASTATIC
     Dosage: 256.1 MG, Q3W, IV
     Route: 042
     Dates: start: 20060913, end: 20061004
  4. BEVACIZUMAB [Suspect]
     Indication: COLON CANCER METASTATIC
     Dosage: 626.93 MG, Q3W, IV
     Route: 042
     Dates: start: 20060913, end: 20061004
  5. METOPROLOL TARTRATE [Concomitant]
  6. ATIVAN [Concomitant]
  7. OXYCODONE HCL [Concomitant]
  8. OXYCONTIN [Concomitant]
  9. ZOFRAN [Concomitant]
  10. COMPAZINO [Concomitant]
  11. SENNA-S [Concomitant]
  12. IMODIUM [Concomitant]
  13. CLEOCIN T [Concomitant]
  14. RESTORIL [Concomitant]

REACTIONS (1)
  - INTESTINAL OBSTRUCTION [None]
